FAERS Safety Report 12135486 (Version 4)
Quarter: 2019Q4

REPORT INFORMATION
  Report Type: Spontaneous
  Country: US (occurrence: US)
  Receive Date: 20160302
  Receipt Date: 20191216
  Transmission Date: 20200122
  Serious: No
  Sender: FDA-Public Use
  Company Number: US-JNJFOC-20160206074

PATIENT
  Sex: Male

DRUGS (9)
  1. RISPERDAL [Suspect]
     Active Substance: RISPERIDONE
     Indication: DRUG THERAPY
     Dosage: VARYING DOSES OF 1 MG TO 2 MG
     Route: 048
     Dates: start: 20090106, end: 20130403
  2. RISPERDAL [Suspect]
     Active Substance: RISPERIDONE
     Route: 048
     Dates: start: 20140612, end: 20140930
  3. RISPERDAL [Suspect]
     Active Substance: RISPERIDONE
     Indication: PSYCHOTIC DISORDER
     Route: 048
     Dates: start: 20081210
  4. RISPERDAL [Suspect]
     Active Substance: RISPERIDONE
     Indication: SCHIZOPHRENIA
     Route: 048
     Dates: start: 20130403
  5. RISPERDAL [Suspect]
     Active Substance: RISPERIDONE
     Route: 048
     Dates: start: 20130410
  6. RISPERDAL [Suspect]
     Active Substance: RISPERIDONE
     Route: 048
     Dates: start: 20140612, end: 20140801
  7. RISPERDAL [Suspect]
     Active Substance: RISPERIDONE
     Indication: DRUG THERAPY
     Dosage: VARYING DOSES OF 2 MG TO 3 MG
     Route: 048
     Dates: start: 20140607, end: 20140815
  8. RISPERDAL [Suspect]
     Active Substance: RISPERIDONE
     Indication: PSYCHOTIC DISORDER
     Route: 048
     Dates: start: 20150914
  9. RISPERDAL [Suspect]
     Active Substance: RISPERIDONE
     Indication: SCHIZOPHRENIA
     Route: 048
     Dates: start: 20080223, end: 20080328

REACTIONS (3)
  - Gynaecomastia [Unknown]
  - Abnormal weight gain [Unknown]
  - Emotional distress [Unknown]

NARRATIVE: CASE EVENT DATE: 2008
